FAERS Safety Report 4692002-5 (Version None)
Quarter: 2005Q2

REPORT INFORMATION
  Report Type: 
  Country: None (occurrence: None)
  Receive Date: 20050614
  Receipt Date: 20050601
  Transmission Date: 20051028
  Serious: Yes (Other)
  Sender: FDA-Public Use
  Company Number: 2005085398

PATIENT
  Sex: Female
  Weight: 113.3993 kg

DRUGS (8)
  1. CELEBREX [Suspect]
     Indication: OSTEOARTHRITIS
     Dosage: 20 MG (200 MG, 1 IN 1 D), ORAL
     Route: 048
     Dates: start: 20040501, end: 20050501
  2. BEXTRA [Suspect]
     Indication: OSTEOARTHRITIS
     Dosage: 20 MG (20 MG, 1 IN 1 D), ORAL
     Route: 048
     Dates: start: 20040101, end: 20050101
  3. WELLBUTRIN SR [Concomitant]
  4. ALL OTHER THERAPEUTIC PRODUCTS  (ALL OTHER THERAPEUTIC PROUDCTS) [Concomitant]
  5. POTASSIUM CHLORIDE [Concomitant]
  6. LASIX [Concomitant]
  7. SPIRONOLACTONE [Concomitant]
  8. ZYRTEC [Concomitant]

REACTIONS (9)
  - ASTHMA [None]
  - BRONCHITIS [None]
  - CHOKING [None]
  - DIFFICULTY IN WALKING [None]
  - DRUG INEFFECTIVE [None]
  - NASOPHARYNGITIS [None]
  - PULMONARY CONGESTION [None]
  - SINUSITIS [None]
  - SWELLING [None]
